FAERS Safety Report 14759159 (Version 1)
Quarter: 2018Q2

REPORT INFORMATION
  Report Type: Spontaneous
  Country: DE (occurrence: DE)
  Receive Date: 20180413
  Receipt Date: 20180413
  Transmission Date: 20180711
  Serious: Yes (Other)
  Sender: FDA-Public Use
  Company Number: DE-MYLANLABS-2018M1022888

PATIENT
  Age: 37 Year
  Sex: Female
  Weight: 52 kg

DRUGS (5)
  1. MAGNETRANS                         /07349401/ [Concomitant]
     Indication: CONSTIPATION
     Dosage: 600 MG, QD
     Route: 048
  2. FOLIO                              /00349401/ [Concomitant]
     Active Substance: CYANOCOBALAMIN\FOLIC ACID
     Indication: PROPHYLAXIS OF NEURAL TUBE DEFECT
     Dosage: UNK 0.4 [MG/D ]
     Route: 048
  3. QUETIAPINE. [Suspect]
     Active Substance: QUETIAPINE
     Indication: DEPRESSION
     Dosage: UNK,300 [MG/D RET. ]/ AT GW 32+3 DOSAGE INCREASED TO 300 MG/D RET. (FROM 250), ADDITIONALLY 25MG NON
     Route: 048
  4. SKINOREN [Concomitant]
     Active Substance: AZELAIC ACID
     Indication: ACNE
     Dosage: UNK 20%
     Route: 003
  5. BECLOMETASONE [Concomitant]
     Active Substance: BECLOMETHASONE DIPROPIONATE
     Indication: NASAL POLYPS
     Dosage: UNK 100 [?G/D (PRO SEITE 50 ?G) ]
     Route: 045

REACTIONS (2)
  - Maternal exposure during pregnancy [Recovered/Resolved]
  - Gestational diabetes [Recovered/Resolved]
